FAERS Safety Report 10606446 (Version 1)
Quarter: 2014Q4

REPORT INFORMATION
  Report Type: Spontaneous
  Country: US (occurrence: None)
  Receive Date: 20141124
  Receipt Date: 20141124
  Transmission Date: 20150529
  Serious: No
  Sender: FDA-Public Use
  Company Number: None

PATIENT
  Age: 49 Year
  Sex: Female
  Weight: 61.2 kg

DRUGS (9)
  1. GABAPENTIN. [Concomitant]
     Active Substance: GABAPENTIN
  2. NORCO [Concomitant]
     Active Substance: ACETAMINOPHEN\HYDROCODONE BITARTRATE
  3. PRILOSEC [Concomitant]
     Active Substance: OMEPRAZOLE MAGNESIUM
  4. UROCRIT-K [Concomitant]
  5. CA CARB [Concomitant]
  6. PREDNISONE. [Concomitant]
     Active Substance: PREDNISONE
  7. PLAQUENIL [Concomitant]
     Active Substance: HYDROXYCHLOROQUINE SULFATE
  8. THALIDOMIDE [Suspect]
     Active Substance: THALIDOMIDE
     Indication: CUTANEOUS LUPUS ERYTHEMATOSUS
     Dosage: CHRONIC, EOD, EON
     Route: 048
  9. BISACODYL. [Concomitant]
     Active Substance: BISACODYL

REACTIONS (3)
  - Chest pain [None]
  - Pulmonary embolism [None]
  - Dyspnoea [None]

NARRATIVE: CASE EVENT DATE: 20140724
